FAERS Safety Report 18444109 (Version 4)
Quarter: 2020Q4

REPORT INFORMATION
  Report Type: Spontaneous
  Country: US (occurrence: US)
  Receive Date: 20201030
  Receipt Date: 20201221
  Transmission Date: 20210114
  Serious: Yes (Hospitalization)
  Sender: FDA-Public Use
  Company Number: US-CELGENEUS-USA-20201006855

PATIENT
  Age: 67 Year
  Sex: Male
  Weight: 116.3 kg

DRUGS (23)
  1. TRAVOPROST. [Concomitant]
     Active Substance: TRAVOPROST
     Indication: GLAUCOMA
     Dosage: .004 PERCENT
     Route: 047
     Dates: start: 201601
  2. AZACITIDINE. [Suspect]
     Active Substance: AZACITIDINE
     Indication: ACUTE MYELOID LEUKAEMIA
     Dosage: 75 MILLIGRAM/SQ. METER
     Route: 058
     Dates: start: 20200831, end: 20201006
  3. VENETOCLAX. [Suspect]
     Active Substance: VENETOCLAX
     Dosage: 70 MILLIGRAM
     Route: 048
     Dates: start: 20200903, end: 20201006
  4. LYRICA [Concomitant]
     Active Substance: PREGABALIN
     Indication: NEUROPATHY PERIPHERAL
     Dosage: 300 MILLIGRAM
     Route: 048
     Dates: start: 201601
  5. MIRABEGRON [Concomitant]
     Active Substance: MIRABEGRON
     Indication: HYPERTONIC BLADDER
     Dosage: 50 MILLIGRAM
     Route: 048
     Dates: start: 201501
  6. PYRIDIUM [Concomitant]
     Active Substance: PHENAZOPYRIDINE
     Indication: NEPHROLITHIASIS
     Route: 048
     Dates: start: 20200827
  7. VENETOCLAX. [Suspect]
     Active Substance: VENETOCLAX
     Dosage: 50 MILLIGRAM
     Route: 048
     Dates: start: 20200902, end: 20200902
  8. JANUVIA [Concomitant]
     Active Substance: SITAGLIPTIN PHOSPHATE
     Indication: DIABETES MELLITUS
     Dosage: 100 MILLIGRAM
     Route: 048
     Dates: start: 201601
  9. ALLOPURINOL. [Concomitant]
     Active Substance: ALLOPURINOL
     Indication: PROPHYLAXIS
     Dosage: 300 MILLIGRAM
     Route: 048
     Dates: start: 20200828
  10. METFORMIN HCL [Concomitant]
     Active Substance: METFORMIN HYDROCHLORIDE
     Indication: DIABETES MELLITUS
     Dosage: 2000 MILLIGRAM
     Route: 048
     Dates: start: 20170524
  11. ACYCLOVIR. [Concomitant]
     Active Substance: ACYCLOVIR
     Indication: PROPHYLAXIS
     Dosage: 1600 MILLIGRAM
     Route: 048
     Dates: start: 20200828
  12. AZACITIDINE. [Suspect]
     Active Substance: AZACITIDINE
     Dosage: 75 MILLIGRAM/SQ. METER
     Route: 058
     Dates: start: 2020
  13. POSACONAZOLE [Concomitant]
     Active Substance: POSACONAZOLE
     Indication: PROPHYLAXIS
     Dosage: 300 MILLIGRAM
     Route: 048
     Dates: start: 20200831
  14. ULTRAM [Concomitant]
     Active Substance: TRAMADOL HYDROCHLORIDE
     Indication: PRODUCT USED FOR UNKNOWN INDICATION
     Dosage: 50 MILLIGRAM
     Route: 048
     Dates: start: 20200827
  15. VENETOCLAX. [Suspect]
     Active Substance: VENETOCLAX
     Dosage: 20 MILLIGRAM
     Route: 048
     Dates: start: 20200901, end: 20200901
  16. VENETOCLAX. [Suspect]
     Active Substance: VENETOCLAX
     Dosage: 70 MILLIGRAM
     Route: 048
     Dates: start: 2020
  17. LORATADINE. [Concomitant]
     Active Substance: LORATADINE
     Indication: SEASONAL ALLERGY
     Dosage: 10 MILLIGRAM
     Route: 048
     Dates: start: 20200722
  18. ATORVASTATIN [Concomitant]
     Active Substance: ATORVASTATIN
     Indication: HYPERLIPIDAEMIA
     Dosage: 20 MILLIGRAM
     Route: 048
     Dates: start: 201801
  19. VENETOCLAX. [Suspect]
     Active Substance: VENETOCLAX
     Indication: ACUTE MYELOID LEUKAEMIA
     Dosage: 10 MILLIGRAM
     Route: 048
     Dates: start: 20200831, end: 20200831
  20. METOPROLOL SUCCINATE. [Concomitant]
     Active Substance: METOPROLOL SUCCINATE
     Indication: HYPERTENSION
     Dosage: 50 MILLIGRAM
     Route: 048
     Dates: start: 201501
  21. LEVOFLOXACIN. [Concomitant]
     Active Substance: LEVOFLOXACIN
     Indication: PROPHYLAXIS
     Dosage: 500 MILLIGRAM
     Route: 048
     Dates: start: 20200828
  22. ROPINIROLE. [Concomitant]
     Active Substance: ROPINIROLE
     Indication: NEUROPATHY PERIPHERAL
     Dosage: 1 MILLIGRAM
     Route: 048
     Dates: start: 20200524
  23. COMPAZINE [Concomitant]
     Active Substance: PROCHLORPERAZINE MALEATE
     Indication: NAUSEA
     Dosage: 10 MILLIGRAM
     Route: 048
     Dates: start: 20200901

REACTIONS (1)
  - Febrile neutropenia [Recovered/Resolved]

NARRATIVE: CASE EVENT DATE: 20201018
